FAERS Safety Report 12955043 (Version 2)
Quarter: 2016Q4

REPORT INFORMATION
  Report Type: Spontaneous
  Country: CN (occurrence: CN)
  Receive Date: 20161118
  Receipt Date: 20161125
  Transmission Date: 20170207
  Serious: Yes (Other)
  Sender: FDA-Public Use
  Company Number: CN-009507513-1611CHN007679

PATIENT
  Age: 9 Year
  Sex: Male

DRUGS (2)
  1. SINGULAIR [Suspect]
     Active Substance: MONTELUKAST SODIUM
     Indication: ASTHMA PROPHYLAXIS
     Dosage: STRENGTH AND TOTAL DAILY DOSE REPORTED AS 4MG OR 5MG, QD
     Route: 048
     Dates: start: 2010, end: 20161011
  2. SINGULAIR [Suspect]
     Active Substance: MONTELUKAST SODIUM
     Indication: ALLERGIC BRONCHITIS

REACTIONS (3)
  - Epilepsy [Recovered/Resolved]
  - Pneumonia [Unknown]
  - Coma [Recovered/Resolved]

NARRATIVE: CASE EVENT DATE: 201606
